FAERS Safety Report 21729046 (Version 1)
Quarter: 2022Q4

REPORT INFORMATION
  Report Type: Spontaneous
  Country: US (occurrence: None)
  Receive Date: 20221214
  Receipt Date: 20221214
  Transmission Date: 20230113
  Serious: Yes (Other)
  Sender: FDA-Public Use
  Company Number: None

PATIENT
  Sex: Female

DRUGS (1)
  1. BUPRENORPHINE\NALOXONE [Suspect]
     Active Substance: BUPRENORPHINE\NALOXONE
     Indication: Drug dependence

REACTIONS (8)
  - Bone graft [None]
  - Tooth abscess [None]
  - Pain [None]
  - Nausea [None]
  - Drug dependence [None]
  - Swelling face [None]
  - Gingival abscess [None]
  - Infection [None]

NARRATIVE: CASE EVENT DATE: 20221214
